FAERS Safety Report 16371983 (Version 1)
Quarter: 2019Q3

REPORT INFORMATION
  Report Type: Spontaneous
  Country: US (occurrence: US)
  Receive Date: 20190529
  Receipt Date: 20190529
  Transmission Date: 20191004
  Serious: Yes (Other)
  Sender: FDA-Public Use
  Company Number: None

PATIENT
  Age: 55 Year
  Sex: Female
  Weight: 93.15 kg

DRUGS (2)
  1. FASLODEX [Suspect]
     Active Substance: FULVESTRANT
     Indication: BREAST CANCER FEMALE
     Dosage: ?          OTHER FREQUENCY:EVERY 28 DAYS;?
     Route: 030
     Dates: start: 20180608, end: 20190522
  2. IBRANCE [Concomitant]
     Active Substance: PALBOCICLIB
     Dates: start: 20180608, end: 20190522

REACTIONS (1)
  - Laryngospasm [None]

NARRATIVE: CASE EVENT DATE: 20190522
